FAERS Safety Report 24207987 (Version 1)
Quarter: 2024Q3

REPORT INFORMATION
  Report Type: Report from Study
  Country: GB (occurrence: GB)
  Receive Date: 20240814
  Receipt Date: 20240814
  Transmission Date: 20241016
  Serious: Yes (Death, Other)
  Sender: SANDOZ
  Company Number: GB-NOVPHSZ-PHHY2019GB177888

PATIENT
  Sex: Female

DRUGS (2)
  1. HYRIMOZ [Suspect]
     Active Substance: ADALIMUMAB-ADAZ
     Indication: Rheumatoid arthritis
     Dosage: UNK, Q2W
     Route: 065
     Dates: start: 20190726
  2. HYRIMOZ [Suspect]
     Active Substance: ADALIMUMAB-ADAZ
     Dosage: 40 MG, Q2W (EOW) 40MG/0.4ML SOLUTION FOR INJECTION PRE-FILLED PENS)
     Route: 058

REACTIONS (2)
  - Death [Fatal]
  - Injection site pain [Recovered/Resolved]
